FAERS Safety Report 8050477-8 (Version None)
Quarter: 2012Q1

REPORT INFORMATION
  Report Type: 
  Country: None (occurrence: None)
  Receive Date: 20120117
  Receipt Date: 20120109
  Transmission Date: 20120608
  Serious: Yes (Hospitalization, Other)
  Sender: FDA-Public Use
  Company Number: US-ASTRAZENECA-2011SE62119

PATIENT
  Age: 73 Year
  Sex: Female
  Weight: 60.3 kg

DRUGS (31)
  1. SYMBICORT [Suspect]
     Dosage: 2 P IN AM ONLY
     Route: 055
  2. SYMBICORT [Suspect]
     Dosage: UNKNOWN DOSE, TWO TIMES A DAY
     Route: 055
  3. TEGRETOL [Concomitant]
     Indication: OCCIPITAL NEURALGIA
  4. AMLODIPINE [Concomitant]
     Route: 048
  5. SPIRONOLACTONE [Concomitant]
     Route: 048
  6. PRILOSEC OTC [Suspect]
     Route: 048
  7. PRAVASTATIN [Concomitant]
     Route: 048
  8. NITROGLYCERIN [Concomitant]
     Dosage: DISSOLVE ONE TABLET UNDER THE TOUNGUE MAY REPEAT EVERY 5 MINUTES. MAXIMUM OF 3 DOSES IN 15 MINUTES
     Route: 060
  9. ISOSORBIDE MONONITRATE [Concomitant]
  10. CARBAMAZEPINE [Concomitant]
  11. PNEUMOVAX 23 [Concomitant]
     Dates: start: 20081023
  12. ALBUTEROL [Concomitant]
     Dosage: RESCUE USE TWO TIMES PER DAY
  13. LABETALOL HCL [Concomitant]
     Route: 048
  14. ASPIRIN [Concomitant]
  15. PROAIR HFA [Concomitant]
     Dosage: 90 MCG/1 ACTUATION 2 PUFFS Q 4 TO 6 HRS PRN
     Route: 048
  16. PNEUMOVAX 23 [Concomitant]
     Dates: start: 20000516
  17. ATIVAN [Concomitant]
     Indication: POOR QUALITY SLEEP
  18. PEPCID [Concomitant]
     Indication: DYSPEPSIA
     Dosage: Q 12 H AS NEEDED
     Route: 048
  19. VITAMIN D [Concomitant]
  20. MULTI-VITAMIN [Concomitant]
  21. ACETAMINOPHEN [Concomitant]
  22. PAXIL [Concomitant]
     Route: 048
  23. INFLUENZA VIRUS VACCINE [Concomitant]
     Dates: start: 20081023
  24. SYMBICORT [Suspect]
     Dosage: 160 MCG / 4.5 MCG TWO INHALATIONS BY MOUTH ONCE DAILY
     Route: 055
  25. CRESTOR [Concomitant]
  26. LOPID [Concomitant]
     Route: 048
  27. LORAZEPAM [Concomitant]
     Route: 048
  28. CARBAMAZEPINE [Concomitant]
  29. STOOL SOFTNER [Concomitant]
  30. CALCIUM [Concomitant]
  31. INFLUENZA VIRUS VACCINE [Concomitant]
     Dates: start: 20101108

REACTIONS (32)
  - GLAUCOMA [None]
  - OSTEOPOROSIS [None]
  - BACK PAIN [None]
  - PAIN IN EXTREMITY [None]
  - DIARRHOEA [None]
  - DYSPEPSIA [None]
  - ILIAC ARTERY STENOSIS [None]
  - PERIPHERAL VASCULAR DISORDER [None]
  - OSTEOMYELITIS [None]
  - ESCHERICHIA SEPSIS [None]
  - CHEST PAIN [None]
  - POLLAKIURIA [None]
  - HEADACHE [None]
  - CEREBROVASCULAR ACCIDENT [None]
  - GASTROOESOPHAGEAL REFLUX DISEASE [None]
  - PYELONEPHRITIS [None]
  - IMPAIRED GASTRIC EMPTYING [None]
  - ANAEMIA [None]
  - DIVERTICULUM [None]
  - HYPERCHOLESTEROLAEMIA [None]
  - HYPERTENSION [None]
  - CAROTID ARTERY STENOSIS [None]
  - RENAL ARTERY STENOSIS [None]
  - METABOLIC ACIDOSIS [None]
  - GASTRITIS [None]
  - HIATUS HERNIA [None]
  - ADVERSE EVENT [None]
  - CHRONIC OBSTRUCTIVE PULMONARY DISEASE [None]
  - CORONARY ARTERY DISEASE [None]
  - HYPERLIPIDAEMIA [None]
  - DYSPHONIA [None]
  - NEURALGIA [None]
